FAERS Safety Report 6609923-6 (Version None)
Quarter: 2010Q1

REPORT INFORMATION
  Report Type: 
  Country: None (occurrence: None)
  Receive Date: 20100302
  Receipt Date: 20091026
  Transmission Date: 20100710
  Serious: Yes (Other)
  Sender: FDA-Public Use
  Company Number: US-SANOFI-AVENTIS-A03200904992

PATIENT
  Age: 73 Year
  Sex: Male

DRUGS (1)
  1. DRONEDARONE [Suspect]
     Indication: ATRIAL FIBRILLATION
     Dosage: UNIT DOSE: 400 MG
     Route: 048
     Dates: start: 20091022

REACTIONS (3)
  - ATRIAL FIBRILLATION [None]
  - BLOOD PRESSURE FLUCTUATION [None]
  - PULSE ABNORMAL [None]
